FAERS Safety Report 10769842 (Version 1)
Quarter: 2015Q1

REPORT INFORMATION
  Report Type: Spontaneous
  Country: US (occurrence: None)
  Receive Date: 20150204
  Receipt Date: 20150204
  Transmission Date: 20150721
  Serious: Yes (Death)
  Sender: FDA-Public Use
  Company Number: 2724706

PATIENT
  Age: 38 Year
  Sex: Male

DRUGS (2)
  1. MORPHINE SULPHATE [Suspect]
     Active Substance: MORPHINE SULFATE
     Dates: start: 2013, end: 2013
  2. QUETIAPINE [Suspect]
     Active Substance: QUETIAPINE
     Dates: start: 2013, end: 2013

REACTIONS (3)
  - Self-medication [None]
  - Drug abuse [None]
  - Poisoning [None]

NARRATIVE: CASE EVENT DATE: 2013
